FAERS Safety Report 9154771 (Version 1)
Quarter: 2013Q1

REPORT INFORMATION
  Report Type: Spontaneous
  Country: US (occurrence: None)
  Receive Date: 20130308
  Receipt Date: 20130308
  Transmission Date: 20140127
  Serious: No
  Sender: FDA-Public Use
  Company Number: None

PATIENT
  Sex: Female
  Weight: 2.49 kg

DRUGS (7)
  1. ABILIFY [Suspect]
     Dosage: L Q 1 NIGHT
  2. SPIRONO [Concomitant]
  3. HCTZ [Concomitant]
  4. METFORMIN HCL [Concomitant]
  5. AMLODIPINE [Concomitant]
  6. ATORVASTATIN [Concomitant]
  7. COMNIVENT [Concomitant]

REACTIONS (2)
  - Night sweats [None]
  - Fatigue [None]
